FAERS Safety Report 8733817 (Version 4)
Quarter: 2013Q4

REPORT INFORMATION
  Report Type: Spontaneous
  Country: TR (occurrence: TR)
  Receive Date: 20120821
  Receipt Date: 20131202
  Transmission Date: 20140711
  Serious: Yes (Hospitalization, Other)
  Sender: FDA-Public Use
  Company Number: TR-AMGEN-TURSP2012052360

PATIENT
  Age: 50 Year
  Sex: Male

DRUGS (2)
  1. ENBREL [Suspect]
     Indication: ANKYLOSING SPONDYLITIS
     Dosage: 50 MG, WEEKLY
     Route: 058
     Dates: start: 20110531, end: 20120805
  2. ENBREL [Suspect]
     Dosage: UNK
     Route: 058
     Dates: start: 20120915

REACTIONS (7)
  - Hyperhidrosis [Recovering/Resolving]
  - Enteritis [Recovering/Resolving]
  - Arthralgia [Recovered/Resolved]
  - Arthropathy [Recovered/Resolved]
  - Inappropriate schedule of drug administration [Not Recovered/Not Resolved]
  - Pain [Recovered/Resolved]
  - Movement disorder [Recovered/Resolved]
